FAERS Safety Report 22588460 (Version 1)
Quarter: 2023Q2

REPORT INFORMATION
  Report Type: Report from Study
  Country: US (occurrence: US)
  Receive Date: 20230612
  Receipt Date: 20230612
  Transmission Date: 20230722
  Serious: No
  Sender: FDA-Public Use
  Company Number: US-002147023-NVSC2023US131333

PATIENT
  Sex: Male

DRUGS (12)
  1. CLOBETASOL [Suspect]
     Active Substance: CLOBETASOL
     Indication: Psoriasis
     Dosage: UNK
     Route: 065
  2. CLOBETASOL [Suspect]
     Active Substance: CLOBETASOL
     Indication: Psoriatic arthropathy
  3. CALCIPOTRIENE [Suspect]
     Active Substance: CALCIPOTRIENE
     Indication: Psoriasis
     Dosage: UNK
     Route: 065
  4. CALCIPOTRIENE [Suspect]
     Active Substance: CALCIPOTRIENE
     Indication: Psoriatic arthropathy
  5. FLUTICASONE [Suspect]
     Active Substance: FLUTICASONE
     Indication: Psoriasis
     Dosage: UNK
     Route: 065
  6. FLUTICASONE [Suspect]
     Active Substance: FLUTICASONE
     Indication: Psoriatic arthropathy
  7. HYDROCHLOROTHIAZIDE [Suspect]
     Active Substance: HYDROCHLOROTHIAZIDE
     Indication: Psoriasis
     Dosage: UNK
     Route: 065
  8. HYDROCHLOROTHIAZIDE [Suspect]
     Active Substance: HYDROCHLOROTHIAZIDE
     Indication: Psoriatic arthropathy
  9. LOSARTAN [Suspect]
     Active Substance: LOSARTAN
     Indication: Psoriasis
     Dosage: UNK
     Route: 065
  10. LOSARTAN [Suspect]
     Active Substance: LOSARTAN
     Indication: Psoriatic arthropathy
  11. ROSUVASTATIN [Suspect]
     Active Substance: ROSUVASTATIN
     Indication: Psoriasis
     Dosage: UNK
     Route: 065
  12. ROSUVASTATIN [Suspect]
     Active Substance: ROSUVASTATIN
     Indication: Psoriatic arthropathy

REACTIONS (1)
  - Drug ineffective [Unknown]
